FAERS Safety Report 18478202 (Version 1)
Quarter: 2020Q4

REPORT INFORMATION
  Report Type: Spontaneous
  Country: None (occurrence: US)
  Receive Date: 20201109
  Receipt Date: 20201109
  Transmission Date: 20210114
  Serious: No
  Sender: FDA-Public Use
  Company Number: US-ALEOR DERMACEUTICALS LTD-2020SCAL000480

PATIENT

DRUGS (1)
  1. CLOBETASOL PROPIONATE. [Suspect]
     Active Substance: CLOBETASOL PROPIONATE
     Dosage: UNK
     Route: 061
     Dates: start: 20200708

REACTIONS (1)
  - Skin disorder [Unknown]

NARRATIVE: CASE EVENT DATE: 202008
